FAERS Safety Report 8805073 (Version 1)
Quarter: 2012Q4

REPORT INFORMATION
  Report Type: 
  Country: US (occurrence: US)
  Receive Date: 20120924
  Receipt Date: 20120924
  Transmission Date: 20130627
  Serious: Yes (Death)
  Sender: FDA-Public Use
  Company Number: US-ROCHE-1102437

PATIENT
  Age: 81 Year
  Sex: Female

DRUGS (2)
  1. AVASTIN [Suspect]
     Indication: UTERINE CANCER
     Route: 065
     Dates: start: 20080801, end: 20080801
  2. AVASTIN [Suspect]
     Indication: ENDOMETRIAL CANCER

REACTIONS (1)
  - Death [Fatal]
